FAERS Safety Report 9936769 (Version 1)
Quarter: 2014Q1

REPORT INFORMATION
  Report Type: Spontaneous
  Country: US (occurrence: None)
  Receive Date: 20140103
  Receipt Date: 20140103
  Transmission Date: 20141002
  Serious: Yes (Hospitalization)
  Sender: FDA-Public Use
  Company Number: FK201301566

PATIENT
  Age: 51 Year
  Sex: Female

DRUGS (9)
  1. PROPOFOL [Suspect]
     Indication: COLONOSCOPY
     Dates: start: 20130507, end: 20130507
  2. PROPOFOL [Suspect]
     Indication: OESOPHAGOGASTRODUODENOSCOPY
     Dates: start: 20130507, end: 20130507
  3. DIPRIVAN [Suspect]
     Indication: COLONOSCOPY
     Dates: start: 20130507, end: 20130507
  4. DIPRIVAN [Suspect]
     Indication: OESOPHAGOGASTRODUODENOSCOPY
     Dates: start: 20130507, end: 20130507
  5. VITAMIN B 12 [Concomitant]
  6. PRILOSEC [Concomitant]
  7. LIPITOR (ATORVASTATIN CALCIUM) [Concomitant]
  8. DEXILANT [Concomitant]
  9. FISH OIL (FISH OIL) [Concomitant]

REACTIONS (4)
  - Sepsis [None]
  - Cough [None]
  - Pyrexia [None]
  - Chills [None]
